FAERS Safety Report 22590946 (Version 2)
Quarter: 2023Q2

REPORT INFORMATION
  Report Type: Report from Study
  Country: CA (occurrence: CA)
  Receive Date: 20230612
  Receipt Date: 20230628
  Transmission Date: 20230722
  Serious: Yes (Other)
  Sender: FDA-Public Use
  Company Number: CA-AstraZeneca-2023A111425

PATIENT
  Sex: Female

DRUGS (1)
  1. ENHERTU [Suspect]
     Active Substance: FAM-TRASTUZUMAB DERUXTECAN-NXKI
     Indication: HER2 positive breast cancer
     Dosage: 290 MG, ONCE EVERY 3 WK
     Route: 042
     Dates: start: 20220608, end: 20230419

REACTIONS (3)
  - Right ventricular failure [Unknown]
  - Toxicity to various agents [Unknown]
  - Off label use [Unknown]
